FAERS Safety Report 15684935 (Version 1)
Quarter: 2018Q4

REPORT INFORMATION
  Report Type: Spontaneous
  Country: US (occurrence: US)
  Receive Date: 20181204
  Receipt Date: 20181204
  Transmission Date: 20190205
  Serious: Yes (Hospitalization)
  Sender: FDA-Public Use
  Company Number: US-ANTARES PHARMA, INC.-2018-LIT-ME-0539

PATIENT
  Age: 52 Year
  Sex: Male

DRUGS (4)
  1. HYDROXYCHLOROQUINE [Suspect]
     Active Substance: HYDROXYCHLOROQUINE
     Indication: RHEUMATOID ARTHRITIS
     Dosage: UNK, QD
  2. RITUXIMAB. [Concomitant]
     Active Substance: RITUXIMAB
  3. SULFASALAZINE. [Suspect]
     Active Substance: SULFASALAZINE
     Indication: PRODUCT USED FOR UNKNOWN INDICATION
     Dosage: UNK, QD
  4. METHOTREXATE. [Suspect]
     Active Substance: METHOTREXATE
     Indication: PRODUCT USED FOR UNKNOWN INDICATION

REACTIONS (14)
  - Pyrexia [Unknown]
  - Nausea [Unknown]
  - Vomiting [Unknown]
  - Hepatosplenomegaly [Unknown]
  - Fatigue [Unknown]
  - Splenomegaly [Unknown]
  - Cough [Unknown]
  - Chills [Unknown]
  - Night sweats [Unknown]
  - Headache [Unknown]
  - Histoplasmosis [Unknown]
  - Lymphadenopathy [Unknown]
  - Diarrhoea [Unknown]
  - Interstitial lung disease [Unknown]
